FAERS Safety Report 6462126-0 (Version None)
Quarter: 2009Q4

REPORT INFORMATION
  Report Type: 
  Country: None (occurrence: None)
  Receive Date: 20091130
  Receipt Date: 20091116
  Transmission Date: 20100525
  Serious: Yes (Other)
  Sender: FDA-Public Use
  Company Number: US-SANOFI-AVENTIS-2009SA004596

PATIENT
  Sex: Female

DRUGS (1)
  1. PLAQUENIL [Suspect]
     Route: 048

REACTIONS (1)
  - ANAPHYLACTIC REACTION [None]
